FAERS Safety Report 8020382-1 (Version None)
Quarter: 2012Q1

REPORT INFORMATION
  Report Type: 
  Country: None (occurrence: None)
  Receive Date: 20120103
  Receipt Date: 20111221
  Transmission Date: 20120608
  Serious: Yes (Other)
  Sender: FDA-Public Use
  Company Number: US-ELI_LILLY_AND_COMPANY-US201112005222

PATIENT
  Sex: Female

DRUGS (7)
  1. FORTEO [Suspect]
     Dosage: 20 UG, QD
     Dates: start: 20111201
  2. FORTEO [Suspect]
     Indication: OSTEOPOROSIS
     Dosage: 20 UG, QD
     Dates: start: 20041201, end: 20060501
  3. HORMONES [Concomitant]
     Dosage: UNK
     Dates: end: 20060101
  4. PEPCID [Concomitant]
     Indication: GASTROOESOPHAGEAL REFLUX DISEASE
  5. SYNTHROID [Concomitant]
  6. BENICAR [Concomitant]
  7. CHEMOTHERAPEUTICS [Concomitant]
     Dosage: UNK
     Dates: start: 20020101, end: 20110101

REACTIONS (8)
  - BLOOD PRESSURE ABNORMAL [None]
  - HEART RATE INCREASED [None]
  - GOUT [None]
  - DIARRHOEA [None]
  - GASTROINTESTINAL DISORDER [None]
  - VERTIGO [None]
  - INCORRECT DRUG ADMINISTRATION DURATION [None]
  - BREAST CANCER [None]
